FAERS Safety Report 8249375-6 (Version None)
Quarter: 2012Q1

REPORT INFORMATION
  Report Type: 
  Country: None (occurrence: None)
  Receive Date: 20120316
  Receipt Date: 20100405
  Transmission Date: 20120608
  Serious: Yes (Other)
  Sender: FDA-Public Use
  Company Number: PHHY2010US21547

PATIENT
  Age: 56 Year
  Sex: Female
  Weight: 58 kg

DRUGS (2)
  1. VALSARTAN [Concomitant]
  2. TEKTURNA [Suspect]
     Dosage: 300 (UNITS NOT SPECIFIED) DAILY, ORAL
     Route: 048

REACTIONS (1)
  - ANGIOEDEMA [None]
